FAERS Safety Report 23823481 (Version 2)
Quarter: 2024Q2

REPORT INFORMATION
  Report Type: Spontaneous
  Country: US (occurrence: US)
  Receive Date: 20240507
  Receipt Date: 20240527
  Transmission Date: 20240716
  Serious: Yes (Hospitalization)
  Sender: FDA-Public Use
  Company Number: US-TEVA-VS-3193188

PATIENT
  Age: 4 Decade
  Sex: Male

DRUGS (1)
  1. PREDNISONE [Suspect]
     Active Substance: PREDNISONE
     Indication: Asthma
     Route: 065

REACTIONS (3)
  - Candida infection [Recovered/Resolved]
  - Sepsis [Recovered/Resolved]
  - Systemic candida [Recovered/Resolved]
